FAERS Safety Report 8399008-3 (Version None)
Quarter: 2012Q1

REPORT INFORMATION
  Report Type: 
  Country: None (occurrence: None)
  Receive Date: 20120323
  Receipt Date: 20110415
  Transmission Date: 20120608
  Serious: Yes (Hospitalization)
  Sender: FDA-Public Use
  Company Number: 163-21880-11010627

PATIENT
  Age: 76 Year
  Sex: Female

DRUGS (2)
  1. REVLIMID [Suspect]
     Indication: MULTIPLE MYELOMA
     Dosage: 25 MG, QD X 21 DAY EVERY 28 DAYS, PO
     Route: 048
     Dates: start: 20101115
  2. REVLIMID [Suspect]
     Indication: MULTIPLE MYELOMA
     Dosage: 25 MG, QD X 21 DAY EVERY 28 DAYS, PO
     Route: 048
     Dates: start: 20101001, end: 20101011

REACTIONS (3)
  - ANAEMIA [None]
  - FATIGUE [None]
  - PNEUMONIA [None]
